FAERS Safety Report 9108665 (Version 3)
Quarter: 2013Q2

REPORT INFORMATION
  Report Type: Spontaneous
  Country: DE (occurrence: DE)
  Receive Date: 20130222
  Receipt Date: 20130417
  Transmission Date: 20140414
  Serious: Yes (Death, Hospitalization, Other)
  Sender: FDA-Public Use
  Company Number: DE-AMGEN-DEUSP2013012270

PATIENT
  Age: 69 Year
  Sex: Male
  Weight: 93 kg

DRUGS (8)
  1. ENBREL [Suspect]
     Indication: RHEUMATOID ARTHRITIS
     Dosage: 50 MG, WEEKLY
     Route: 058
     Dates: start: 200506, end: 201203
  2. LISINOPRIL [Concomitant]
     Dosage: 10 MG, UNK
  3. CALCIMAGON-D3 [Concomitant]
     Dosage: UNK
  4. BELOC-ZOC COMP [Concomitant]
     Dosage: 200 MG, UNK
  5. PREDNISOLONE [Concomitant]
     Dosage: 5 MG, UNK
  6. HCT ISIS [Concomitant]
     Dosage: 12.5 MG, UNK
  7. CLEXANE [Concomitant]
     Dosage: 0.6 UNK, UNK
     Route: 058
  8. METOPROLOL [Concomitant]
     Dosage: 20 MG, UNK

REACTIONS (1)
  - Oesophageal adenocarcinoma [Fatal]
